FAERS Safety Report 14940912 (Version 1)
Quarter: 2018Q2

REPORT INFORMATION
  Report Type: Report from Study
  Country: MX (occurrence: MX)
  Receive Date: 20180525
  Receipt Date: 20180525
  Transmission Date: 20180711
  Serious: Yes (Other)
  Sender: FDA-Public Use
  Company Number: PHHY2018MX006976

PATIENT
  Sex: Male
  Weight: 84 kg

DRUGS (1)
  1. TRAVATAN [Suspect]
     Active Substance: TRAVOPROST
     Indication: GLAUCOMA
     Dosage: 2 GTT, Q8H (IN EACH EYE)
     Route: 065
     Dates: start: 2003

REACTIONS (6)
  - Intraocular pressure increased [Unknown]
  - Blindness unilateral [Not Recovered/Not Resolved]
  - Vision blurred [Unknown]
  - Prescribed overdose [Unknown]
  - Glaucoma [Unknown]
  - Visual impairment [Not Recovered/Not Resolved]
